FAERS Safety Report 8610258-0 (Version None)
Quarter: 2012Q3

REPORT INFORMATION
  Report Type: 
  Country: None (occurrence: None)
  Receive Date: 20120810
  Receipt Date: 20120810
  Transmission Date: 20120928
  Serious: Yes (Hospitalization)
  Sender: FDA-Public Use
  Company Number: None

PATIENT
  Sex: Male
  Weight: 101 kg

DRUGS (9)
  1. BEVACIZUMAB (RHUMAB VEGF) [Suspect]
     Dosage: 512 MG
  2. FILGRASTIM [Concomitant]
  3. FLUOROURACIL [Suspect]
     Dosage: 904 MG
  4. LEUCOVORIN CALCIUM [Suspect]
     Dosage: 904 MG
  5. ACYCLOVIR [Concomitant]
  6. DOCUSATE [Concomitant]
  7. HYDROCHLOROTHIAZIDE [Concomitant]
  8. ELOXATIN [Suspect]
     Dosage: 192 MG
  9. PHENERGAN HCL [Concomitant]

REACTIONS (3)
  - GAIT DISTURBANCE [None]
  - GAZE PALSY [None]
  - DYSSTASIA [None]
